FAERS Safety Report 4969819-2 (Version None)
Quarter: 2006Q2

REPORT INFORMATION
  Report Type: 
  Country: None (occurrence: None)
  Receive Date: 20060411
  Receipt Date: 20060202
  Transmission Date: 20061013
  Serious: Yes (Disabling, Other)
  Sender: FDA-Public Use
  Company Number: US-MERCK-0602USA01765

PATIENT
  Age: 68 Year
  Sex: Female
  Weight: 109 kg

DRUGS (8)
  1. VIOXX [Suspect]
     Indication: ARTHRALGIA
     Route: 048
     Dates: start: 19890101, end: 20040801
  2. VIOXX [Suspect]
     Indication: OSTEOARTHRITIS
     Route: 048
     Dates: start: 19890101, end: 20040801
  3. LOPRESSOR [Concomitant]
     Indication: HYPERTENSION
     Route: 065
     Dates: start: 19800101
  4. LOPRESSOR [Concomitant]
     Indication: MYOCARDIAL INFARCTION
     Route: 065
     Dates: start: 19800101
  5. PROCARDIA [Concomitant]
     Indication: CARDIAC DISORDER
     Route: 065
     Dates: start: 19890601
  6. LASIX [Concomitant]
     Indication: OEDEMA PERIPHERAL
     Route: 065
     Dates: start: 20010801
  7. WARFARIN [Concomitant]
     Indication: DEEP VEIN THROMBOSIS
     Route: 065
  8. DARVOCET [Concomitant]
     Route: 065
     Dates: start: 19900101

REACTIONS (5)
  - BLOOD CHOLESTEROL INCREASED [None]
  - CEREBROVASCULAR ACCIDENT [None]
  - DEEP VEIN THROMBOSIS [None]
  - MYOCARDIAL INFARCTION [None]
  - OEDEMA PERIPHERAL [None]
